FAERS Safety Report 17241789 (Version 1)
Quarter: 2020Q1

REPORT INFORMATION
  Report Type: Other
  Country: US (occurrence: US)
  Receive Date: 20200107
  Receipt Date: 20200107
  Transmission Date: 20200409
  Serious: Yes (Death)
  Sender: FDA-Public Use
  Company Number: US-SUNRISE PHARMACEUTICAL, INC.-2078566

PATIENT
  Age: 41 Year
  Sex: Female
  Weight: 72.7 kg

DRUGS (2)
  1. OXYCODONE HYDROCHLORIDE. [Suspect]
     Active Substance: OXYCODONE HYDROCHLORIDE
     Indication: PRODUCT USED FOR UNKNOWN INDICATION
     Route: 065
  2. TAPENTADOL [Suspect]
     Active Substance: TAPENTADOL
     Route: 065

REACTIONS (4)
  - Pneumonia aspiration [Fatal]
  - Completed suicide [Fatal]
  - Pulmonary oedema [Fatal]
  - Toxicity to various agents [Fatal]
